FAERS Safety Report 23322212 (Version 1)
Quarter: 2023Q4

REPORT INFORMATION
  Report Type: Spontaneous
  Country: US (occurrence: None)
  Receive Date: 20231220
  Receipt Date: 20231220
  Transmission Date: 20240109
  Serious: Yes (Hospitalization)
  Sender: FDA-Public Use
  Company Number: None

PATIENT
  Sex: Male

DRUGS (1)
  1. JEVTANA [Suspect]
     Active Substance: CABAZITAXEL
     Indication: Bone cancer
     Dosage: FREQUENCY : EVERY THREE WEEKS;?OTHER ROUTE : INFUSIO ;?
     Route: 050
     Dates: start: 202311

REACTIONS (1)
  - Hemiplegia [None]
